FAERS Safety Report 9125501 (Version 3)
Quarter: 2013Q2

REPORT INFORMATION
  Report Type: Spontaneous
  Country: JP (occurrence: JP)
  Receive Date: 20130227
  Receipt Date: 20130606
  Transmission Date: 20140414
  Serious: Yes (Hospitalization)
  Sender: FDA-Public Use
  Company Number: JP-GLAXOSMITHKLINE-B0869827A

PATIENT
  Age: 88 Year
  Sex: Female
  Weight: 31 kg

DRUGS (4)
  1. VALTREX [Suspect]
     Indication: HERPES ZOSTER
     Dosage: 1000MG THREE TIMES PER DAY
     Route: 048
     Dates: start: 20130213, end: 20130215
  2. CALBLOCK [Concomitant]
     Indication: HYPERTENSION
     Dosage: 16MG PER DAY
     Route: 048
     Dates: end: 20130216
  3. PREMINENT [Concomitant]
     Indication: HYPERTENSION
     Dosage: 1IUAX PER DAY
     Route: 048
     Dates: end: 20130216
  4. CEFACLOR [Concomitant]
     Route: 048

REACTIONS (8)
  - Encephalopathy [Recovering/Resolving]
  - Renal impairment [Recovering/Resolving]
  - Depressed level of consciousness [Recovering/Resolving]
  - Altered state of consciousness [Unknown]
  - Toxic encephalopathy [Unknown]
  - Nervous system disorder [Unknown]
  - Azotaemia [Unknown]
  - Overdose [Unknown]
